FAERS Safety Report 4684907-6 (Version None)
Quarter: 2005Q2

REPORT INFORMATION
  Report Type: 
  Country: None (occurrence: None)
  Receive Date: 20050606
  Receipt Date: 20050606
  Transmission Date: 20051028
  Serious: Yes (Other)
  Sender: FDA-Public Use
  Company Number: None

PATIENT
  Age: 55 Year

DRUGS (3)
  1. CITALOPRAM 20 MG [Suspect]
     Indication: MAJOR DEPRESSION
     Dosage: 2-3 PO QD
     Route: 048
     Dates: start: 20050201, end: 20050501
  2. AMBIEN [Concomitant]
  3. KLONOPIN [Concomitant]

REACTIONS (1)
  - THERAPEUTIC RESPONSE UNEXPECTED WITH DRUG SUBSTITUTION [None]
